FAERS Safety Report 8594723-0 (Version None)
Quarter: 2012Q3

REPORT INFORMATION
  Report Type: 
  Country: None (occurrence: None)
  Receive Date: 20120815
  Receipt Date: 20120807
  Transmission Date: 20120928
  Serious: Yes (Life-Threatening, Hospitalization)
  Sender: FDA-Public Use
  Company Number: US-BAYER-2012-081257

PATIENT
  Age: 43 Year
  Sex: Female
  Weight: 102 kg

DRUGS (7)
  1. YAZ [Suspect]
     Indication: CONTRACEPTION
  2. GUAIFENESIN AND PSEUDOEPHEDRINE HYDROCHLORIDE [Concomitant]
     Dosage: 600 MG, ONE B.I.D. P.R.N.
     Route: 048
     Dates: start: 20090519, end: 20100419
  3. IRON [Concomitant]
     Dosage: 325 MG, BID
     Route: 048
     Dates: start: 20100522
  4. OMEPRAZOLE [Concomitant]
     Dosage: 20 MG, QD
     Route: 048
     Dates: start: 20100522
  5. YAZ [Suspect]
     Indication: MENOMETRORRHAGIA
  6. GUAIFENESIN AND PSEUDOEPHEDRINE HYDROCHLORIDE [Concomitant]
     Dosage: 600 MG, ONE B.I.D. P.R.N.
     Route: 048
     Dates: start: 20100522
  7. ALLEGRA-D 12 HOUR [Concomitant]
     Dosage: ONE EVERY 12 HOURS P.R.N.
     Route: 048
     Dates: start: 20100522

REACTIONS (2)
  - PULMONARY EMBOLISM [None]
  - DEEP VEIN THROMBOSIS [None]
